FAERS Safety Report 7479059-3 (Version None)
Quarter: 2011Q2

REPORT INFORMATION
  Report Type: 
  Country: None (occurrence: None)
  Receive Date: 20110511
  Receipt Date: 20110511
  Transmission Date: 20111010
  Serious: Yes (Other)
  Sender: FDA-Public Use
  Company Number: None

PATIENT
  Sex: Female
  Weight: 72.1219 kg

DRUGS (3)
  1. AZITHROMYCIN [Suspect]
     Indication: BRONCHITIS
     Dosage: 2 PO DAY 1   1 PO DAY 2-5 PO
     Route: 048
     Dates: start: 20110408
  2. AZITHROMYCIN [Suspect]
     Indication: BRONCHITIS
     Dosage: 2 PO DAY 1   1 PO DAY 2-5 PO
     Route: 048
     Dates: start: 20110409
  3. AZITHROMYCIN [Suspect]
     Indication: BRONCHITIS
     Dosage: 2 PO DAY 1   1 PO DAY 2-5 PO
     Route: 048
     Dates: start: 20110410

REACTIONS (2)
  - PRODUCT CONTAMINATION MICROBIAL [None]
  - DYSPNOEA [None]
